FAERS Safety Report 8671436 (Version 3)
Quarter: 2013Q1

REPORT INFORMATION
  Report Type: Spontaneous
  Country: US (occurrence: US)
  Receive Date: 20120718
  Receipt Date: 20130204
  Transmission Date: 20140127
  Serious: Yes (Life-Threatening, Hospitalization)
  Sender: FDA-Public Use
  Company Number: US-GILEAD-2012-0057963

PATIENT
  Sex: Female

DRUGS (2)
  1. LETAIRIS [Suspect]
     Indication: PULMONARY HYPERTENSION
     Dosage: 10 MG, UNK
     Route: 048
     Dates: start: 20120111, end: 20121217
  2. COUMADIN                           /00014802/ [Suspect]

REACTIONS (5)
  - Pneumonia [Unknown]
  - Dialysis [Unknown]
  - Renal disorder [Unknown]
  - Mechanical ventilation [Unknown]
  - Dyspnoea [Unknown]
